FAERS Safety Report 24300250 (Version 2)
Quarter: 2024Q3

REPORT INFORMATION
  Report Type: Spontaneous
  Country: US (occurrence: US)
  Receive Date: 20240909
  Receipt Date: 20240918
  Transmission Date: 20241017
  Serious: No
  Sender: ELI LILLY AND CO
  Company Number: US-ELI_LILLY_AND_COMPANY-US202409004387

PATIENT
  Age: 44 Year
  Sex: Female

DRUGS (2)
  1. OMVOH [Suspect]
     Active Substance: MIRIKIZUMAB-MRKZ
     Indication: Colitis ulcerative
     Dosage: 200 MG, UNKNOWN
     Route: 065
     Dates: start: 20240613
  2. OMVOH [Suspect]
     Active Substance: MIRIKIZUMAB-MRKZ
     Dosage: 200 MG, UNKNOWN
     Route: 065
     Dates: start: 20240905

REACTIONS (2)
  - Discomfort [Recovered/Resolved]
  - Injection site pain [Recovered/Resolved]
